FAERS Safety Report 9045610 (Version 1)
Quarter: 2013Q1

REPORT INFORMATION
  Report Type: Spontaneous
  Country: US (occurrence: US)
  Receive Date: 20130131
  Receipt Date: 20130131
  Transmission Date: 20140127
  Serious: No
  Sender: FDA-Public Use
  Company Number: US-ABBOTT-12P-163-1014789-00

PATIENT
  Age: 38 None
  Sex: Female
  Weight: 70.82 kg

DRUGS (4)
  1. HUMIRA [Suspect]
     Indication: CROHN^S DISEASE
     Route: 058
     Dates: start: 20120824, end: 20121126
  2. ASACOL [Concomitant]
     Indication: CROHN^S DISEASE
  3. AZULFIDINE [Concomitant]
     Indication: CROHN^S DISEASE
  4. 6-MP [Concomitant]
     Indication: CROHN^S DISEASE

REACTIONS (1)
  - Alopecia [Not Recovered/Not Resolved]
